FAERS Safety Report 9556301 (Version 1)
Quarter: 2013Q3

REPORT INFORMATION
  Report Type: Spontaneous
  Country: US (occurrence: None)
  Receive Date: 20130906
  Receipt Date: 20130906
  Transmission Date: 20140515
  Serious: Yes (Disabling, Other)
  Sender: FDA-Public Use
  Company Number: 163-POMAL-13061883

PATIENT
  Age: 80 Year
  Sex: Male

DRUGS (12)
  1. POMALYST [Suspect]
     Indication: PLASMA CELL MYELOMA
     Route: 048
     Dates: start: 20130424, end: 20130520
  2. TRANSFUSION (OTHER THERAPEUTIC PRODUCTS) [Concomitant]
  3. PREDNISONE [Concomitant]
  4. LOVENOX (HEPARIN-FRACTION, SODIUM SALT) [Concomitant]
  5. SIMVASTATIN [Concomitant]
  6. LISINOPRIL [Concomitant]
  7. ALLPURINOL [Concomitant]
  8. DIFLUCAN (FLUCONAZOLE) [Concomitant]
  9. LASIX (FUROSEMIDE) [Concomitant]
  10. TUMS (CALCIUM CARBONATE) [Concomitant]
  11. METOPROLOL [Concomitant]
  12. VALTREX (VALACYCLOVIR HYDROCHLORIDE) [Concomitant]

REACTIONS (1)
  - White blood cell count decreased [None]
